FAERS Safety Report 16951949 (Version 1)
Quarter: 2019Q4

REPORT INFORMATION
  Report Type: Report from Study
  Country: CA (occurrence: CA)
  Receive Date: 20191023
  Receipt Date: 20191023
  Transmission Date: 20200122
  Serious: Yes (Death)
  Sender: FDA-Public Use
  Company Number: CA-INCYTE CORPORATION-2017IN005109

PATIENT

DRUGS (6)
  1. JAKAVI [Suspect]
     Active Substance: RUXOLITINIB
     Dosage: 25 MG, UNK
     Route: 048
     Dates: end: 201904
  2. JAKAVI [Suspect]
     Active Substance: RUXOLITINIB
     Indication: MYELOFIBROSIS
     Dosage: 10 MG, BID
     Route: 048
     Dates: start: 20170324, end: 201904
  3. JAKAVI [Suspect]
     Active Substance: RUXOLITINIB
     Dosage: 15 MG, BID
     Route: 048
     Dates: start: 20170617
  4. JAKAVI [Suspect]
     Active Substance: RUXOLITINIB
     Dosage: 15MG QAM AND 10MG QPM
     Route: 048
     Dates: start: 201712
  5. JAKAVI [Suspect]
     Active Substance: RUXOLITINIB
     Dosage: 10 MG AND 15 MG ALTERNATE, QD
     Route: 048
  6. JAKAVI [Suspect]
     Active Substance: RUXOLITINIB
     Dosage: 10 MG, BID
     Route: 048
     Dates: start: 20170927

REACTIONS (6)
  - Platelet count decreased [Unknown]
  - Initial insomnia [Unknown]
  - Feeling hot [Unknown]
  - Death [Fatal]
  - Up and down phenomenon [Unknown]
  - Therapeutic response shortened [Unknown]
